FAERS Safety Report 9107388 (Version 1)
Quarter: 2013Q1

REPORT INFORMATION
  Report Type: Spontaneous
  Country: US (occurrence: US)
  Receive Date: 20130221
  Receipt Date: 20130221
  Transmission Date: 20140127
  Serious: No
  Sender: FDA-Public Use
  Company Number: US-PFIZER INC-2013064161

PATIENT
  Age: 50 Year
  Sex: Female
  Weight: 48.98 kg

DRUGS (1)
  1. RELPAX [Suspect]
     Indication: MIGRAINE
     Dosage: UNK

REACTIONS (3)
  - Influenza [Unknown]
  - Migraine [Unknown]
  - Drug ineffective [Unknown]
